FAERS Safety Report 5506676-X (Version None)
Quarter: 2007Q4

REPORT INFORMATION
  Report Type: 
  Country: None (occurrence: None)
  Receive Date: 20071101
  Receipt Date: 20071029
  Transmission Date: 20080405
  Serious: Yes (Other)
  Sender: FDA-Public Use
  Company Number: ADE# 07-021

PATIENT
  Age: 49 Year
  Sex: Female

DRUGS (7)
  1. CLONAZEPAM [Suspect]
     Indication: PANIC ATTACK
     Dosage: 1 TABLET
  2. BUSPAR [Concomitant]
  3. ASPIRIN [Concomitant]
  4. RANITIDINE [Concomitant]
  5. LITHIUM CARBONATE [Concomitant]
  6. KEPPRA [Concomitant]
  7. CARDIZEM [Concomitant]

REACTIONS (2)
  - DRUG INEFFECTIVE [None]
  - PANIC ATTACK [None]
